FAERS Safety Report 18242523 (Version 4)
Quarter: 2020Q4

REPORT INFORMATION
  Report Type: Spontaneous
  Country: US (occurrence: US)
  Receive Date: 20200908
  Receipt Date: 20201116
  Transmission Date: 20210113
  Serious: Yes (Other)
  Sender: FDA-Public Use
  Company Number: US-MEDEXUS PHARMA, INC.-2020MED00257

PATIENT
  Sex: Male
  Weight: 100.23 kg

DRUGS (13)
  1. IXINITY [Suspect]
     Active Substance: COAGULATION FACTOR IX RECOMBINANT HUMAN
     Dosage: 2750 IU, APPROXIMATELY EVERY 3 WEEKS, ^MORE LIKE EVERY 2 WEEKS^
  2. TAMSULOSIN [Concomitant]
     Active Substance: TAMSULOSIN
  3. IPRATROPIUM BROMIDE. [Concomitant]
     Active Substance: IPRATROPIUM BROMIDE
  4. AZELASTINE HCL [Concomitant]
     Active Substance: AZELASTINE HYDROCHLORIDE
  5. ACETAMINOPHEN. [Concomitant]
     Active Substance: ACETAMINOPHEN
  6. OXYCODONE [Concomitant]
     Active Substance: OXYCODONE
     Dosage: UNK
  7. LOSARTAN. [Concomitant]
     Active Substance: LOSARTAN
  8. UNSPECIFIED WATER PILLS [Concomitant]
     Active Substance: UNSPECIFIED INGREDIENT
  9. UNSPECIFIED DECONGESTANTS [Concomitant]
  10. IXINITY [Suspect]
     Active Substance: COAGULATION FACTOR IX RECOMBINANT HUMAN
     Indication: FACTOR IX DEFICIENCY
     Dosage: 1500-1800 IU, APPROXIMATELY EVERY 3 WEEKS, ^MORE LIKE EVERY 2 WEEKS
     Dates: start: 201802
  11. OXYCODONE [Concomitant]
     Active Substance: OXYCODONE
     Dosage: UNK
  12. CLONIDINE. [Concomitant]
     Active Substance: CLONIDINE
  13. UNSPECIFIED ANTI-DEPRESSANT [Concomitant]

REACTIONS (11)
  - Influenza like illness [Recovered/Resolved]
  - Dyspnoea [Recovering/Resolving]
  - Haemorrhage [Recovered/Resolved]
  - Rhinitis [Recovering/Resolving]
  - Gout [Unknown]
  - Arthritis [Not Recovered/Not Resolved]
  - Swelling [Recovering/Resolving]
  - Urinary tract infection [Recovering/Resolving]
  - Feeling abnormal [Recovered/Resolved]
  - Weight increased [Unknown]
  - Joint swelling [Recovering/Resolving]

NARRATIVE: CASE EVENT DATE: 2020
